FAERS Safety Report 4479527-2 (Version None)
Quarter: 2004Q4

REPORT INFORMATION
  Report Type: 
  Country: None (occurrence: None)
  Receive Date: 20041015
  Receipt Date: 20040930
  Transmission Date: 20050328
  Serious: No
  Sender: FDA-Public Use
  Company Number: 2004UW14830

PATIENT
  Age: 8 Year
  Sex: Male
  Weight: 43.0917 kg

DRUGS (3)
  1. SEROQUEL [Suspect]
     Indication: BIPOLAR DISORDER
     Dosage: 300 MG DAILY PO
     Route: 048
     Dates: start: 20030901
  2. CONCERTA [Concomitant]
  3. RITALIN [Concomitant]

REACTIONS (9)
  - AGGRESSION [None]
  - ANGER [None]
  - ANXIETY [None]
  - BIPOLAR DISORDER [None]
  - DEPRESSION [None]
  - DISEASE RECURRENCE [None]
  - MOOD SWINGS [None]
  - OBSESSIVE THOUGHTS [None]
  - SUICIDE ATTEMPT [None]
